FAERS Safety Report 4898336-3 (Version None)
Quarter: 2006Q1

REPORT INFORMATION
  Report Type: 
  Country: None (occurrence: None)
  Receive Date: 20060127
  Receipt Date: 20060106
  Transmission Date: 20060701
  Serious: Yes (Death, Hospitalization, Other)
  Sender: FDA-Public Use
  Company Number: US_0508120856

PATIENT
  Age: 82 Year
  Sex: Female
  Weight: 81.6 kg

DRUGS (17)
  1. ZYPREXA [Suspect]
     Dosage: 2.5 MG, DAILY (1/D), ORAL
     Route: 048
     Dates: start: 20020501, end: 20030807
  2. COREG [Concomitant]
  3. DESYREL [Concomitant]
  4. POTASSIUM CHLORIDE [Concomitant]
  5. LASIX (FUROSEMIDE, FUROSEMIDE SODIUM) [Concomitant]
  6. NITROGLYCERIN TRANSDERMAL SYSTEM (GLYCERYL TRINITRATE) [Concomitant]
  7. COLACE (DOCUSATE SODIUM) [Concomitant]
  8. PREVACID [Concomitant]
  9. CATAFLAM [Concomitant]
  10. NEURONTIN [Concomitant]
  11. FLEXERIL [Concomitant]
  12. CALCIUM WITH VITAMIN D (CALCIUM PHOSPHATE, CALCIUM SODIUM LACTATE, ERG [Concomitant]
  13. NORVASC [Concomitant]
  14. REGLAN [Concomitant]
  15. PROVERA [Concomitant]
  16. ASPIRIN [Concomitant]
  17. LORTAB [Concomitant]

REACTIONS (19)
  - ABNORMAL BEHAVIOUR [None]
  - ACTIVITIES OF DAILY LIVING IMPAIRED [None]
  - ANAEMIA [None]
  - CARDIAC FAILURE CONGESTIVE [None]
  - CARDIO-RESPIRATORY ARREST [None]
  - CEREBROVASCULAR DISORDER [None]
  - COGNITIVE DETERIORATION [None]
  - CONDITION AGGRAVATED [None]
  - CONFUSIONAL STATE [None]
  - DIABETES MELLITUS [None]
  - DYSARTHRIA [None]
  - ESCHERICHIA SEPSIS [None]
  - GASTROINTESTINAL HAEMORRHAGE [None]
  - HYPERLIPIDAEMIA [None]
  - HYPERTENSION [None]
  - HYPOTENSION [None]
  - MOOD ALTERED [None]
  - PANCREATITIS ACUTE [None]
  - RENAL FAILURE ACUTE [None]
